FAERS Safety Report 4610352-5 (Version None)
Quarter: 2005Q1

REPORT INFORMATION
  Report Type: 
  Country: None (occurrence: None)
  Receive Date: 20050314
  Receipt Date: 20050307
  Transmission Date: 20050727
  Serious: Yes (Hospitalization)
  Sender: FDA-Public Use
  Company Number: CIP05000063

PATIENT
  Age: 74 Year
  Sex: Female
  Weight: 102.9 kg

DRUGS (6)
  1. ACTONEL [Suspect]
     Indication: PAIN IN EXTREMITY
     Dosage: ORAL
     Route: 048
  2. CARDIOGEN (LEVOCARNITINE) [Concomitant]
  3. PREVACID [Concomitant]
  4. FEOSOL (FERROUS SULFATE) [Concomitant]
  5. LASIX [Concomitant]
  6. ZYTREC (CETIRIZINE HYDROCHLORIDE) [Concomitant]

REACTIONS (5)
  - ATRIAL FIBRILLATION [None]
  - ATRIAL FLUTTER [None]
  - BEDRIDDEN [None]
  - HEADACHE [None]
  - SYNCOPE [None]
